FAERS Safety Report 16474710 (Version 3)
Quarter: 2019Q3

REPORT INFORMATION
  Report Type: Spontaneous
  Country: GB (occurrence: GB)
  Receive Date: 20190625
  Receipt Date: 20190703
  Transmission Date: 20191004
  Serious: Yes (Other)
  Sender: FDA-Public Use
  Company Number: PHHY2019GB140100

PATIENT
  Age: 31 Year
  Sex: Female

DRUGS (4)
  1. OMACOR [Suspect]
     Active Substance: OMEGA-3-ACID ETHYL ESTERS
     Indication: FAMILIAL HYPERTRIGLYCERIDAEMIA
     Dosage: UNK
     Route: 048
  2. HUMALOG [Suspect]
     Active Substance: INSULIN LISPRO
     Indication: TYPE 2 DIABETES MELLITUS
     Route: 065
  3. HUMULIN NOS [Suspect]
     Active Substance: INSULIN HUMAN
     Indication: TYPE 2 DIABETES MELLITUS
     Route: 065
  4. METFORMIN [Suspect]
     Active Substance: METFORMIN HYDROCHLORIDE
     Indication: TYPE 2 DIABETES MELLITUS
     Dosage: UNK (FIRST TRIMESTER)
     Route: 065

REACTIONS (2)
  - Abortion spontaneous [Recovered/Resolved]
  - Maternal exposure during pregnancy [Recovered/Resolved]

NARRATIVE: CASE EVENT DATE: 2011
